FAERS Safety Report 12163862 (Version 1)
Quarter: 2016Q1

REPORT INFORMATION
  Report Type: Spontaneous
  Country: US (occurrence: US)
  Receive Date: 20160309
  Receipt Date: 20160309
  Transmission Date: 20160526
  Serious: No
  Sender: FDA-Public Use
  Company Number: US-ROCHE-1615519

PATIENT
  Age: 64 Year
  Sex: Male

DRUGS (1)
  1. XOLAIR [Suspect]
     Active Substance: OMALIZUMAB
     Indication: ASTHMA
     Route: 058
     Dates: start: 20140514

REACTIONS (4)
  - Dizziness [Unknown]
  - Nausea [Unknown]
  - Lethargy [Unknown]
  - Chills [Unknown]
